FAERS Safety Report 8726956 (Version 3)
Quarter: 2012Q4

REPORT INFORMATION
  Report Type: 
  Country: JP (occurrence: JP)
  Receive Date: 20120816
  Receipt Date: 20120910
  Transmission Date: 20130627
  Serious: Yes (Hospitalization)
  Sender: FDA-Public Use
  Company Number: JP-ROCHE-1100740

PATIENT
  Age: 53 None
  Sex: Female
  Weight: 74 kg

DRUGS (7)
  1. AVASTIN [Suspect]
     Indication: LUNG ADENOCARCINOMA METASTATIC
     Route: 041
     Dates: start: 20110421, end: 20110912
  2. LOXONIN [Suspect]
     Indication: CANCER PAIN
     Route: 048
     Dates: start: 20100303
  3. CARBOPLATIN [Concomitant]
     Indication: LUNG ADENOCARCINOMA METASTATIC
     Route: 041
     Dates: start: 20110421, end: 20110606
  4. PACLITAXEL [Concomitant]
     Indication: LUNG ADENOCARCINOMA METASTATIC
     Route: 041
     Dates: start: 20110421, end: 20110606
  5. GLIMICRON [Concomitant]
     Indication: DIABETES MELLITUS
     Route: 048
     Dates: start: 2008
  6. TAKEPRON [Concomitant]
     Indication: GASTRIC ULCER
     Route: 048
     Dates: start: 20100322
  7. MUCOSTA [Concomitant]
     Indication: GASTRIC ULCER
     Route: 048
     Dates: start: 20100309

REACTIONS (3)
  - Large intestinal ulcer [Recovered/Resolved]
  - Melaena [Recovered/Resolved]
  - Impaired healing [Not Recovered/Not Resolved]
